FAERS Safety Report 9408161 (Version 2)
Quarter: 2013Q3

REPORT INFORMATION
  Report Type: Spontaneous
  Country: US (occurrence: US)
  Receive Date: 20130718
  Receipt Date: 20130809
  Transmission Date: 20140515
  Serious: Yes (Hospitalization, Other)
  Sender: FDA-Public Use
  Company Number: US-JNJFOC-20130710692

PATIENT
  Age: 50 Year
  Sex: Female

DRUGS (11)
  1. INVOKANA [Suspect]
     Indication: PRODUCT USED FOR UNKNOWN INDICATION
     Route: 065
     Dates: start: 20130519
  2. FISH OIL [Concomitant]
  3. NOVOLOG [Concomitant]
     Route: 058
  4. SYNTHROID [Concomitant]
  5. BENICAR [Concomitant]
  6. ACIPHEX [Concomitant]
  7. LYSINE [Concomitant]
  8. VALACYCLOVIR [Concomitant]
  9. LORAZEPAM [Concomitant]
  10. VITAMIN B COMPLEX PLUS C [Concomitant]
  11. VITAMIN D [Concomitant]

REACTIONS (3)
  - Diabetic ketoacidosis [Recovered/Resolved]
  - Dehydration [Recovered/Resolved]
  - Off label use [Unknown]
